FAERS Safety Report 7748060-4 (Version None)
Quarter: 2011Q3

REPORT INFORMATION
  Report Type: 
  Country: None (occurrence: None)
  Receive Date: 20110913
  Receipt Date: 20110614
  Transmission Date: 20111222
  Serious: No
  Sender: FDA-Public Use
  Company Number: US-ALLERGAN-1108026US

PATIENT

DRUGS (1)
  1. ACZONE [Suspect]
     Indication: ACNE

REACTIONS (1)
  - NEUROPATHY PERIPHERAL [None]
